FAERS Safety Report 5159268-9 (Version None)
Quarter: 2006Q4

REPORT INFORMATION
  Report Type: 
  Country: None (occurrence: None)
  Receive Date: 20061117
  Receipt Date: 20061107
  Transmission Date: 20070319
  Serious: Yes (Hospitalization)
  Sender: FDA-Public Use
  Company Number: 2006086671

PATIENT
  Age: 45 Year
  Sex: Male
  Weight: 71 kg

DRUGS (8)
  1. SUTENT [Suspect]
     Indication: RENAL CELL CARCINOMA STAGE UNSPECIFIED
     Dosage: 50 MG (50 MG, 1 IN 1 D), ORAL
     Route: 048
     Dates: start: 20051226
  2. NEXIUM [Concomitant]
  3. LEVOTHYROXINE SODIUM [Concomitant]
  4. OXYCONTIN [Concomitant]
  5. OXYCODONE HCL [Concomitant]
  6. FERROUS SULFATE TAB [Concomitant]
  7. DURAGESIC-100 [Concomitant]
  8. GABAPENTIN [Concomitant]

REACTIONS (1)
  - PLEURAL EFFUSION [None]
